FAERS Safety Report 8774342 (Version 2)
Quarter: 2013Q2

REPORT INFORMATION
  Report Type: Spontaneous
  Country: DK (occurrence: DK)
  Receive Date: 20120907
  Receipt Date: 20130624
  Transmission Date: 20140414
  Serious: Yes (Other)
  Sender: FDA-Public Use
  Company Number: DK-ELI_LILLY_AND_COMPANY-DK201208009236

PATIENT
  Sex: 0

DRUGS (4)
  1. GEMCITABINE HYDROCHLORIDE [Suspect]
     Dosage: 1000 MG/M2, UNK
     Route: 042
  2. OXALIPLATIN [Suspect]
     Dosage: 60 MG/M2, UNK
     Route: 042
  3. PANITUMUMAB [Concomitant]
     Dosage: 6 MG/KG, UNK
     Route: 042
  4. CAPECITABINE [Concomitant]
     Dosage: 1000 MG/M2, BID

REACTIONS (1)
  - Peripheral motor neuropathy [Unknown]
